FAERS Safety Report 8896910 (Version 12)
Quarter: 2014Q2

REPORT INFORMATION
  Report Type: Spontaneous
  Country: JP (occurrence: None)
  Receive Date: 20121108
  Receipt Date: 20140617
  Transmission Date: 20141212
  Serious: Yes (Hospitalization, Other)
  Sender: FDA-Public Use
  Company Number: ADR-2012-02019

PATIENT
  Age: 45 Month
  Sex: Female
  Weight: 10 kg

DRUGS (10)
  1. GABALON [Suspect]
     Route: 037
     Dates: start: 20120921
  2. PHENOBAL [Concomitant]
  3. TEMAZEPAM [Concomitant]
  4. GABALON [Concomitant]
  5. ARTANE [Concomitant]
  6. CERCINE [Concomitant]
  7. TRICLORYL [Concomitant]
  8. RIVOTRIL [Concomitant]
  9. HYSERENIN [Concomitant]
  10. EXCEGRAN [Concomitant]

REACTIONS (18)
  - Myotonia [None]
  - Hypertonia [None]
  - Cerebrospinal fluid leakage [None]
  - Implant site extravasation [None]
  - Hypertonia [None]
  - Muscle tightness [None]
  - Pneumonia [None]
  - Implant site swelling [None]
  - Implant site vesicles [None]
  - Muscle spasms [None]
  - Overdose [None]
  - Intracranial hypotension [None]
  - Infusion site cyst [None]
  - Therapeutic response decreased [None]
  - Respiratory rate decreased [None]
  - Bradypnoea [None]
  - Bradycardia [None]
  - Drug effect decreased [None]
